FAERS Safety Report 7214510-5 (Version None)
Quarter: 2010Q4

REPORT INFORMATION
  Report Type: 
  Country: None (occurrence: None)
  Receive Date: 20101126
  Receipt Date: 20091029
  Transmission Date: 20110411
  Serious: Yes (Other)
  Sender: FDA-Public Use
  Company Number: WAES 0805USA02819

PATIENT
  Age: 65 Year
  Sex: Female

DRUGS (6)
  1. FOSAMAX [Suspect]
     Indication: OSTEOPOROSIS
     Dosage: 70 MG/PO ; PO ; 70 MG/PO
     Route: 048
     Dates: start: 20010101, end: 20070101
  2. FOSAMAX [Suspect]
     Indication: OSTEOPOROSIS
     Dosage: 70 MG/PO ; PO ; 70 MG/PO
     Route: 048
     Dates: start: 20010101
  3. FOSAMAX [Suspect]
     Indication: OSTEOPOROSIS
     Dosage: 70 MG/PO ; PO ; 70 MG/PO
     Route: 048
     Dates: start: 20060826
  4. FOSAMAX PLUS D [Suspect]
     Dosage: PO
     Route: 048
     Dates: start: 20061227
  5. ATACAND [Concomitant]
  6. CRESTOR [Concomitant]

REACTIONS (13)
  - ANXIETY [None]
  - BONE DENSITY DECREASED [None]
  - BONE DISORDER [None]
  - BRONCHIECTASIS [None]
  - DENTAL CARIES [None]
  - HAEMOPTYSIS [None]
  - HERPES VIRUS INFECTION [None]
  - LOOSE TOOTH [None]
  - LUNG DISORDER [None]
  - MUSCULOSKELETAL DISORDER [None]
  - OSTEOMYELITIS [None]
  - TENDONITIS [None]
  - VENOUS INSUFFICIENCY [None]
